FAERS Safety Report 25739475 (Version 1)
Quarter: 2025Q3

REPORT INFORMATION
  Report Type: Spontaneous
  Country: US (occurrence: None)
  Receive Date: 20250829
  Receipt Date: 20250829
  Transmission Date: 20251021
  Serious: No
  Sender: ENCUBE ETHICALS PVT. LTD.
  Company Number: US-Encube-002175

PATIENT

DRUGS (1)
  1. FLUOROURACIL [Suspect]
     Active Substance: FLUOROURACIL
     Indication: Skin disorder
     Dosage: APPLIED FOR TWO WEEKS
     Dates: start: 2025

REACTIONS (1)
  - Application site scab [Unknown]

NARRATIVE: CASE EVENT DATE: 20250101
